FAERS Safety Report 7204731-X (Version None)
Quarter: 2011Q1

REPORT INFORMATION
  Report Type: 
  Country: None (occurrence: None)
  Receive Date: 20101230
  Receipt Date: 20101220
  Transmission Date: 20110831
  Serious: Yes (Other)
  Sender: FDA-Public Use
  Company Number: JP-WATSON-2010-16500

PATIENT
  Age: 32 Year
  Sex: Male
  Weight: 74 kg

DRUGS (3)
  1. CYCLOSPORINE [Suspect]
     Indication: SYSTEMIC LUPUS ERYTHEMATOSUS
     Dosage: 169 G CUMULATIVE DOSE
  2. PREDNISOLONE ACETATE [Suspect]
     Indication: SYSTEMIC LUPUS ERYTHEMATOSUS
     Dosage: 20 MG, DAILY, 25.9 G CUMULATIVE DOSE
  3. CYCLOSPORINE [Suspect]
     Indication: SJOGREN'S SYNDROME

REACTIONS (1)
  - FIBROUS HISTIOCYTOMA [None]
